FAERS Safety Report 16194960 (Version 1)
Quarter: 2019Q2

REPORT INFORMATION
  Report Type: Spontaneous
  Country: FR (occurrence: FR)
  Receive Date: 20190415
  Receipt Date: 20190415
  Transmission Date: 20190711
  Serious: Yes (Other)
  Sender: FDA-Public Use
  Company Number: FR-TEVA-2019-FR-1037048

PATIENT
  Age: 17 Year
  Sex: Female
  Weight: 70 kg

DRUGS (2)
  1. NAPROXEN. [Suspect]
     Active Substance: NAPROXEN
     Indication: INTERVERTEBRAL DISC PROTRUSION
     Dosage: 1100 MILLIGRAM DAILY;
     Route: 048
     Dates: start: 20171031, end: 20171105
  2. CODOLIPRANE [Suspect]
     Active Substance: ACETAMINOPHEN\CODEINE PHOSPHATE
     Indication: INTERVERTEBRAL DISC PROTRUSION
     Dosage: 400MG/20MG
     Route: 048
     Dates: start: 20171031, end: 20171108

REACTIONS (2)
  - Hepatocellular injury [Recovered/Resolved]
  - Abdominal pain lower [Recovered/Resolved]

NARRATIVE: CASE EVENT DATE: 20171108
